FAERS Safety Report 4867194-5 (Version None)
Quarter: 2005Q4

REPORT INFORMATION
  Report Type: 
  Country: None (occurrence: None)
  Receive Date: 20051222
  Receipt Date: 20051208
  Transmission Date: 20060501
  Serious: Yes (Other)
  Sender: FDA-Public Use
  Company Number: 2005-BP-21369RO

PATIENT
  Age: 52 Year
  Sex: Male

DRUGS (2)
  1. PREDNISONE [Suspect]
     Indication: TEMPORAL ARTERITIS
     Dosage: 60 MG DAILY, PO
     Route: 048
  2. METHYLPREDNISOLONE [Suspect]
     Indication: TEMPORAL ARTERITIS
     Dosage: 1 GM/DAY X 3 DAYS, IV
     Route: 042

REACTIONS (4)
  - HALLUCINATION, VISUAL [None]
  - MACULAR DEGENERATION [None]
  - RETINOPATHY [None]
  - TEMPORAL ARTERITIS [None]
